FAERS Safety Report 17052255 (Version 1)
Quarter: 2019Q4

REPORT INFORMATION
  Report Type: Spontaneous
  Country: US (occurrence: US)
  Receive Date: 20191120
  Receipt Date: 20191120
  Transmission Date: 20200122
  Serious: Yes (Other)
  Sender: FDA-Public Use
  Company Number: US-AMERICAN REGENT INC-2019002526

PATIENT
  Age: 46 Year
  Sex: Female

DRUGS (7)
  1. VASOPRESSIN INJECTION, USP (0410-10) [Suspect]
     Active Substance: VASOPRESSIN
     Indication: HYPOTENSION
  2. MILRINONE [Suspect]
     Active Substance: MILRINONE
     Indication: HYPOTENSION
     Dosage: UNK
     Route: 042
  3. VASOPRESSIN INJECTION, USP (0410-10) [Suspect]
     Active Substance: VASOPRESSIN
     Indication: SEPTIC SHOCK
     Dosage: UNK
     Route: 042
  4. NOREPINEPHRINE. [Suspect]
     Active Substance: NOREPINEPHRINE
     Indication: HYPOTENSION
     Dosage: UNK
     Route: 042
  5. EPINEPHRINE INJECTION, USP (0517-1071-01) [Suspect]
     Active Substance: EPINEPHRINE
     Indication: SEPTIC SHOCK
     Dosage: UNK
     Route: 042
  6. NOREPINEPHRINE. [Suspect]
     Active Substance: NOREPINEPHRINE
     Indication: SEPTIC SHOCK
  7. MILRINONE [Suspect]
     Active Substance: MILRINONE
     Indication: SEPTIC SHOCK

REACTIONS (4)
  - Drug ineffective for unapproved indication [Unknown]
  - Product use in unapproved indication [Unknown]
  - Cardiomyopathy [Unknown]
  - Septic shock [Unknown]
